FAERS Safety Report 4662040-7 (Version None)
Quarter: 2005Q2

REPORT INFORMATION
  Report Type: 
  Country: None (occurrence: None)
  Receive Date: 20050512
  Receipt Date: 20050505
  Transmission Date: 20051028
  Serious: Yes (Hospitalization, Other)
  Sender: FDA-Public Use
  Company Number: 2005070948

PATIENT
  Age: 39 Year
  Sex: Female
  Weight: 47.1741 kg

DRUGS (2)
  1. BEXTRA [Suspect]
     Indication: INFLAMMATION
     Dates: start: 20050201, end: 20050201
  2. PHENYLEPHRINE (PHENYLEPHRINE) [Suspect]
     Indication: ILL-DEFINED DISORDER
     Dates: start: 20050203

REACTIONS (7)
  - CARDIAC DISORDER [None]
  - CARDIAC FAILURE CONGESTIVE [None]
  - CARDIO-RESPIRATORY ARREST [None]
  - CARDIOMEGALY [None]
  - MYOCARDIAL INFARCTION [None]
  - OVERDOSE [None]
  - PROCEDURAL COMPLICATION [None]
